FAERS Safety Report 4360039-1 (Version None)
Quarter: 2004Q2

REPORT INFORMATION
  Report Type: 
  Country: None (occurrence: None)
  Receive Date: 20040513
  Receipt Date: 20040505
  Transmission Date: 20050107
  Serious: Yes (Hospitalization)
  Sender: FDA-Public Use
  Company Number: 001-0981-998702

PATIENT
  Age: 75 Year
  Sex: Female
  Weight: 63.5036 kg

DRUGS (12)
  1. ATORVASTATIN (ATORVASTATIN) [Suspect]
     Indication: CORONARY ARTERY DISEASE
     Dosage: 10 MG (1 IN 1 D), ORAL
     Route: 048
     Dates: start: 19981218, end: 19990216
  2. ATORVASTATIN (ATORVASTATIN) [Suspect]
     Indication: CORONARY ARTERY DISEASE
     Dosage: 10 MG (1 IN 1 D), ORAL
     Route: 048
     Dates: start: 19990217, end: 19991122
  3. ISOSORBIDE MONONITRATE [Concomitant]
  4. LEVOTHYROXINE SODIUM [Concomitant]
  5. CARVEDILOL [Concomitant]
  6. METOLAZONE [Concomitant]
  7. NITROGLYCERIN [Concomitant]
  8. OMEPRAZOLE [Concomitant]
  9. ZOLPIDEM TARTRATE [Concomitant]
  10. HYDROCODONE (HYDROCODONE) [Concomitant]
  11. TORSEMIDE [Concomitant]
  12. GABAPENTIN [Concomitant]

REACTIONS (7)
  - ASTHENIA [None]
  - DECREASED APPETITE [None]
  - DEPRESSION [None]
  - DISTURBANCE IN ATTENTION [None]
  - HYPOKALAEMIA [None]
  - INSOMNIA [None]
  - SUICIDAL IDEATION [None]
